FAERS Safety Report 13805913 (Version 1)
Quarter: 2017Q3

REPORT INFORMATION
  Report Type: Spontaneous
  Country: ES (occurrence: ES)
  Receive Date: 20170728
  Receipt Date: 20170728
  Transmission Date: 20171127
  Serious: Yes (Other)
  Sender: FDA-Public Use
  Company Number: PHHY2017ES106349

PATIENT
  Sex: Female

DRUGS (2)
  1. SINTROM [Concomitant]
     Active Substance: ACENOCOUMAROL
     Indication: PRODUCT USED FOR UNKNOWN INDICATION
     Dosage: 4 ML
     Route: 065
  2. LOXIFAN [Suspect]
     Active Substance: LETROZOLE
     Indication: BREAST CANCER
     Dosage: 2.5 MG, QD
     Route: 048
     Dates: start: 20140217

REACTIONS (6)
  - Infrapatellar fat pad inflammation [Unknown]
  - Meniscus injury [Unknown]
  - Joint injury [Not Recovered/Not Resolved]
  - Bone marrow oedema [Unknown]
  - Tendonitis [Unknown]
  - Osteoarthritis [Unknown]
